FAERS Safety Report 6305257-8 (Version None)
Quarter: 2009Q3

REPORT INFORMATION
  Report Type: 
  Country: None (occurrence: None)
  Receive Date: 20090811
  Receipt Date: 20090804
  Transmission Date: 20100115
  Serious: Yes (Hospitalization)
  Sender: FDA-Public Use
  Company Number: PHHY2009BR32855

PATIENT
  Sex: Male

DRUGS (2)
  1. SANDOSTATIN LAR [Suspect]
     Indication: ACROMEGALY
     Dosage: 10 MG
     Route: 065
     Dates: start: 20060101
  2. SANDOSTATIN LAR [Suspect]
     Indication: PITUITARY TUMOUR
     Dosage: 20 MG
     Route: 065

REACTIONS (4)
  - GASTRIC ULCER [None]
  - GASTRITIS [None]
  - RETRO-ORBITAL NEOPLASM [None]
  - TUMOUR EXCISION [None]
